FAERS Safety Report 5535689-7 (Version None)
Quarter: 2007Q4

REPORT INFORMATION
  Report Type: 
  Country: None (occurrence: None)
  Receive Date: 20071206
  Receipt Date: 20070313
  Transmission Date: 20080405
  Serious: Yes (Hospitalization)
  Sender: FDA-Public Use
  Company Number: US-AMGEN-KDL214176

PATIENT
  Age: 52 Year
  Sex: Male

DRUGS (1)
  1. ENBREL [Suspect]
     Indication: PSORIASIS
     Route: 058
     Dates: start: 20060801

REACTIONS (7)
  - CELLULITIS [None]
  - DRUG INEFFECTIVE [None]
  - ERYTHEMA [None]
  - INJECTION SITE REACTION [None]
  - LOCAL SWELLING [None]
  - PROCEDURAL PAIN [None]
  - PSORIASIS [None]
